FAERS Safety Report 5997611-9 (Version None)
Quarter: 2008Q4

REPORT INFORMATION
  Report Type: 
  Country: None (occurrence: None)
  Receive Date: 20081212
  Receipt Date: 20081209
  Transmission Date: 20090506
  Serious: Yes (Hospitalization, Other)
  Sender: FDA-Public Use
  Company Number: US-PFIZER INC-2008095610

PATIENT
  Sex: Female
  Weight: 115.65 kg

DRUGS (9)
  1. SILDENAFIL CITRATE [Suspect]
     Indication: PULMONARY ARTERIAL HYPERTENSION
     Dosage: 80 MG, 3X/DAY, DAILY
     Route: 048
     Dates: start: 20050802
  2. TYLENOL W/ CODEINE [Concomitant]
     Route: 048
     Dates: start: 20020101
  3. FUROSEMIDE [Concomitant]
     Route: 048
     Dates: start: 20020101
  4. POTASSIUM CHLORIDE [Concomitant]
     Route: 048
     Dates: start: 20020101
  5. WARFARIN SODIUM [Concomitant]
     Route: 048
     Dates: start: 20020101
  6. VITAMIN B-12 [Concomitant]
     Route: 030
     Dates: start: 20051111
  7. MULTI-VITAMINS [Concomitant]
     Route: 048
     Dates: start: 20060102
  8. FERROUS SULFATE TAB [Concomitant]
     Route: 048
     Dates: start: 20080725
  9. FLOLAN [Concomitant]
     Dosage: UNK
     Route: 042
     Dates: start: 20020701

REACTIONS (1)
  - CATHETER RELATED INFECTION [None]
